FAERS Safety Report 18833384 (Version 1)
Quarter: 2021Q1

REPORT INFORMATION
  Report Type: Spontaneous
  Country: US (occurrence: US)
  Receive Date: 20210203
  Receipt Date: 20210203
  Transmission Date: 20210419
  Serious: No
  Sender: FDA-Public Use
  Company Number: US-ALLERGAN-2003352US

PATIENT

DRUGS (3)
  1. BOTOX [Suspect]
     Active Substance: ONABOTULINUMTOXINA
     Indication: PUDENDAL CANAL SYNDROME
  2. BOTOX [Suspect]
     Active Substance: ONABOTULINUMTOXINA
     Indication: FISTULA
  3. BOTOX [Suspect]
     Active Substance: ONABOTULINUMTOXINA
     Indication: MYALGIA

REACTIONS (1)
  - Off label use [Unknown]
